FAERS Safety Report 8012681-4 (Version None)
Quarter: 2011Q4

REPORT INFORMATION
  Report Type: 
  Country: None (occurrence: None)
  Receive Date: 20111223
  Receipt Date: 20111223
  Transmission Date: 20120403
  Serious: Yes (Death)
  Sender: FDA-Public Use
  Company Number: None

PATIENT
  Age: 72 Year
  Sex: Male
  Weight: 130 kg

DRUGS (2)
  1. DABIGATRAN (PRADAXA) 150 MG BOEHRINGER INGLEHEIM [Suspect]
     Indication: ATRIAL FIBRILLATION
     Dosage: 150 MG BID PO
     Route: 048
  2. DABIGATRAN (PRADAXA) 150 MG BOEHRINGER INGLEHEIM [Suspect]
     Indication: CEREBROVASCULAR ACCIDENT PROPHYLAXIS
     Dosage: 150 MG BID PO
     Route: 048

REACTIONS (10)
  - FACIAL BONES FRACTURE [None]
  - HAEMODIALYSIS [None]
  - RIB FRACTURE [None]
  - HAEMORRHAGE [None]
  - SPLENIC RUPTURE [None]
  - ROAD TRAFFIC ACCIDENT [None]
  - ISCHAEMIA [None]
  - ANURIA [None]
  - THROMBOSIS [None]
  - ATRIAL FIBRILLATION [None]
